FAERS Safety Report 21799203 (Version 1)
Quarter: 2022Q4

REPORT INFORMATION
  Report Type: Other
  Country: None (occurrence: FR)
  Receive Date: 20221230
  Receipt Date: 20221230
  Transmission Date: 20230113
  Serious: Yes (Life-Threatening, Other)
  Sender: FDA-Public Use
  Company Number: FR-Appco Pharma LLC-2136298

PATIENT
  Age: 39 Year
  Sex: Male

DRUGS (1)
  1. CHLORPROMAZINE [Suspect]
     Active Substance: CHLORPROMAZINE
     Indication: Hiccups
     Route: 065

REACTIONS (2)
  - Acquired haemophilia [Recovering/Resolving]
  - Hepatitis [Unknown]
